FAERS Safety Report 23417517 (Version 2)
Quarter: 2024Q1

REPORT INFORMATION
  Report Type: Spontaneous
  Country: US (occurrence: US)
  Receive Date: 20240118
  Receipt Date: 20240129
  Transmission Date: 20240410
  Serious: No
  Sender: FDA-Public Use
  Company Number: US-ABBVIE-5589553

PATIENT
  Sex: Female

DRUGS (1)
  1. CREON [Suspect]
     Active Substance: PANCRELIPASE AMYLASE\PANCRELIPASE LIPASE\PANCRELIPASE PROTEASE
     Indication: Product used for unknown indication
     Dosage: FORM STRENGTH: 36000 UNIT?FREQUENCY TEXT: UNKNOWN
     Route: 048

REACTIONS (2)
  - Therapeutic product effect decreased [Unknown]
  - Product quality issue [Not Recovered/Not Resolved]
